FAERS Safety Report 17307791 (Version 1)
Quarter: 2020Q1

REPORT INFORMATION
  Report Type: Spontaneous
  Country: US (occurrence: US)
  Receive Date: 20200123
  Receipt Date: 20200123
  Transmission Date: 20200409
  Serious: No
  Sender: FDA-Public Use
  Company Number: US-ALLERGAN-1903394US

PATIENT
  Age: 62 Year
  Sex: Female
  Weight: 78.01 kg

DRUGS (6)
  1. MONUROL [Suspect]
     Active Substance: FOSFOMYCIN TROMETHAMINE
     Indication: URINARY TRACT INFECTION
     Dosage: 3 GM SACHET
     Route: 048
     Dates: start: 20190108, end: 20190114
  2. AMBIEN [Concomitant]
     Active Substance: ZOLPIDEM TARTRATE
     Indication: INSOMNIA
     Dosage: 5 MG, UNK
  3. MONUROL [Suspect]
     Active Substance: FOSFOMYCIN TROMETHAMINE
     Indication: PYELONEPHRITIS CHRONIC
     Dosage: UNK
     Route: 048
  4. HYDROCODONE [Suspect]
     Active Substance: HYDROCODONE
     Indication: URINARY TRACT INFECTION
     Dosage: UNK
     Dates: start: 20190119
  5. KLONOPIN [Concomitant]
     Active Substance: CLONAZEPAM
     Indication: ANXIETY
  6. HYDROCODONE [Suspect]
     Active Substance: HYDROCODONE
     Indication: PYELONEPHRITIS CHRONIC

REACTIONS (4)
  - Incorrect product administration duration [Unknown]
  - Urinary tract infection [Not Recovered/Not Resolved]
  - Pruritus [Not Recovered/Not Resolved]
  - Off label use [Unknown]

NARRATIVE: CASE EVENT DATE: 20190108
